FAERS Safety Report 4636311-4 (Version None)
Quarter: 2005Q2

REPORT INFORMATION
  Report Type: 
  Country: None (occurrence: None)
  Receive Date: 20050415
  Receipt Date: 20040902
  Transmission Date: 20051028
  Serious: No
  Sender: FDA-Public Use
  Company Number: US-BRISTOL-MYERS SQUIBB COMPANY-12690392

PATIENT
  Age: 77 Year
  Sex: Female

DRUGS (1)
  1. PARAPLATIN [Suspect]
     Indication: LUNG NEOPLASM MALIGNANT
     Route: 042
     Dates: start: 20030701

REACTIONS (4)
  - COUGH [None]
  - FLUSHING [None]
  - HYPERSENSITIVITY [None]
  - PALPITATIONS [None]
